FAERS Safety Report 9904399 (Version 1)
Quarter: 2014Q1

REPORT INFORMATION
  Report Type: Spontaneous
  Country: US (occurrence: US)
  Receive Date: 20140218
  Receipt Date: 20140218
  Transmission Date: 20141002
  Serious: Yes (Other)
  Sender: FDA-Public Use
  Company Number: US-AMGEN-USASP2014010463

PATIENT
  Sex: Female

DRUGS (1)
  1. NEULASTA [Suspect]
     Indication: WHITE BLOOD CELL COUNT DECREASED
     Dosage: UNK UNK, AFTER CHEMO
     Route: 065
     Dates: start: 201402

REACTIONS (7)
  - Glossodynia [Unknown]
  - Tongue discolouration [Unknown]
  - Swollen tongue [Unknown]
  - Dyspnoea [Recovered/Resolved]
  - Tachycardia [Unknown]
  - Anxiety [Unknown]
  - Bone pain [Unknown]
